FAERS Safety Report 20701156 (Version 1)
Quarter: 2022Q2

REPORT INFORMATION
  Report Type: Spontaneous
  Country: US (occurrence: US)
  Receive Date: 20220412
  Receipt Date: 20220412
  Transmission Date: 20220721
  Serious: No
  Sender: FDA-Public Use
  Company Number: US-SANOFI-01053589

PATIENT
  Age: 61 Year
  Sex: Male

DRUGS (2)
  1. LANTUS SOLOSTAR [Suspect]
     Active Substance: INSULIN GLARGINE
     Dosage: 50 IU, BID
  2. HUMULIN 3/7 [Concomitant]
     Dosage: 50 IU, BID

REACTIONS (2)
  - Product prescribing issue [Unknown]
  - Product temperature excursion issue [Unknown]
